FAERS Safety Report 12232642 (Version 1)
Quarter: 2016Q2

REPORT INFORMATION
  Report Type: Spontaneous
  Country: US (occurrence: US)
  Receive Date: 20160401
  Receipt Date: 20160401
  Transmission Date: 20160815
  Serious: No
  Sender: FDA-Public Use
  Company Number: US-ASTRAZENECA-2016SE28662

PATIENT
  Age: 3003 Week
  Sex: Female
  Weight: 72.6 kg

DRUGS (1)
  1. MOVANTIK [Suspect]
     Active Substance: NALOXEGOL OXALATE
     Indication: GASTROINTESTINAL DISORDER
     Route: 048
     Dates: start: 20160310

REACTIONS (2)
  - Abdominal pain [Recovered/Resolved]
  - Faeces hard [Unknown]

NARRATIVE: CASE EVENT DATE: 20160310
